FAERS Safety Report 18423719 (Version 1)
Quarter: 2020Q4

REPORT INFORMATION
  Report Type: Spontaneous
  Country: HU (occurrence: HU)
  Receive Date: 20201024
  Receipt Date: 20201024
  Transmission Date: 20210114
  Serious: Yes (Other)
  Sender: FDA-Public Use
  Company Number: NVSC2020HU277782

PATIENT
  Age: 65 Year
  Sex: Male

DRUGS (4)
  1. GLIVEC [Suspect]
     Active Substance: IMATINIB MESYLATE
     Indication: CHRONIC MYELOID LEUKAEMIA
     Dosage: 400 MG (1X)
     Route: 065
     Dates: start: 20131008, end: 201312
  2. GLIVEC [Suspect]
     Active Substance: IMATINIB MESYLATE
     Dosage: UNK
     Route: 065
     Dates: end: 201506
  3. GLIVEC [Suspect]
     Active Substance: IMATINIB MESYLATE
     Dosage: UNK
     Route: 065
     Dates: start: 201510, end: 201511
  4. HYDROXYUREA. [Concomitant]
     Active Substance: HYDROXYUREA
     Indication: CYTOREDUCTIVE SURGERY
     Dosage: UNK
     Route: 065
     Dates: start: 20130930

REACTIONS (11)
  - Hypertension [Unknown]
  - Product dose omission issue [Unknown]
  - Haemoglobin decreased [Unknown]
  - Neutropenia [Recovered/Resolved]
  - Thrombocytosis [Recovered/Resolved]
  - Hepatosplenomegaly [Recovering/Resolving]
  - Leukocytosis [Recovered/Resolved]
  - Drug intolerance [Unknown]
  - Bladder neoplasm [Unknown]
  - Chronic myeloid leukaemia [Recovering/Resolving]
  - Diarrhoea [Unknown]

NARRATIVE: CASE EVENT DATE: 2013
